FAERS Safety Report 9175237 (Version 2)
Quarter: 2013Q2

REPORT INFORMATION
  Report Type: Spontaneous
  Country: FR (occurrence: FR)
  Receive Date: 20130320
  Receipt Date: 20130410
  Transmission Date: 20140414
  Serious: Yes (Other)
  Sender: FDA-Public Use
  Company Number: FR-TEVA-391599ISR

PATIENT
  Age: 26 Year
  Sex: Male

DRUGS (5)
  1. RISPERIDONE [Suspect]
     Indication: SCHIZOPHRENIA, PARANOID TYPE
  2. CLOPIXOL ASP [Suspect]
     Indication: SCHIZOPHRENIA, PARANOID TYPE
     Dosage: 2 VIALS ON ON DAYS 1 AND 2 OF ADMISSION
  3. CYAMEMAZINE [Suspect]
     Indication: SCHIZOPHRENIA, PARANOID TYPE
  4. ALIMEMAZINE [Suspect]
     Indication: SCHIZOPHRENIA, PARANOID TYPE
  5. HALOPERIDOL [Suspect]
     Indication: SCHIZOPHRENIA, PARANOID TYPE

REACTIONS (4)
  - Rhabdomyolysis [Recovering/Resolving]
  - Delirium [Unknown]
  - Pain in extremity [Unknown]
  - Agitation [Unknown]
